FAERS Safety Report 24267526 (Version 3)
Quarter: 2024Q4

REPORT INFORMATION
  Report Type: Spontaneous
  Country: JP (occurrence: JP)
  Receive Date: 20240830
  Receipt Date: 20241210
  Transmission Date: 20250114
  Serious: Yes (Other)
  Sender: ROCHE
  Company Number: JP-CHUGAI-2024030097AA

PATIENT
  Age: 74 Year
  Sex: Female
  Weight: 50.9 kg

DRUGS (2)
  1. PHESGO [Suspect]
     Active Substance: HYALURONIDASE-ZZXF\PERTUZUMAB\TRASTUZUMAB
     Indication: Breast cancer
     Dosage: UNK
     Route: 058
     Dates: start: 20231226, end: 20231226
  2. PHESGO [Suspect]
     Active Substance: HYALURONIDASE-ZZXF\PERTUZUMAB\TRASTUZUMAB
     Dosage: UNK
     Route: 058
     Dates: start: 20240116, end: 20240702

REACTIONS (11)
  - Platelet count decreased [Unknown]
  - Anaemia [Unknown]
  - Fall [Unknown]
  - Loss of consciousness [Recovered/Resolved]
  - Acute myeloid leukaemia [Not Recovered/Not Resolved]
  - Myelodysplastic syndrome [Unknown]
  - Diarrhoea [Not Recovered/Not Resolved]
  - Incontinence [Recovered/Resolved]
  - Anaemia [Unknown]
  - Loss of consciousness [Unknown]
  - Fall [Unknown]

NARRATIVE: CASE EVENT DATE: 20231226
